FAERS Safety Report 5020147-9 (Version None)
Quarter: 2006Q2

REPORT INFORMATION
  Report Type: 
  Country: None (occurrence: None)
  Receive Date: 20060602
  Receipt Date: 20060512
  Transmission Date: 20061013
  Serious: Yes (Hospitalization, Other)
  Sender: FDA-Public Use
  Company Number: JP_040202598

PATIENT
  Age: 64 Year
  Sex: Male
  Weight: 52 kg

DRUGS (7)
  1. GEMZAR [Suspect]
     Indication: PANCREATIC CARCINOMA
     Dosage: 450 MG, OTHER, INTRAVENOUS
     Route: 042
     Dates: start: 20021105, end: 20021122
  2. RADIATION THERAPY (RADIATION THERAPY) [Concomitant]
  3. FAMOTIDINE [Concomitant]
  4. BERIZYM [Concomitant]
  5. SELBEX (TEPRENONE) [Concomitant]
  6. PRIMPERAN TAB [Concomitant]
  7. ZOFRAN [Concomitant]

REACTIONS (12)
  - ASPIRATION [None]
  - BONE MARROW FAILURE [None]
  - BRONCHITIS CHRONIC [None]
  - CHILLS [None]
  - ESCHERICHIA INFECTION [None]
  - LUNG ABSCESS [None]
  - MALAISE [None]
  - NEUTROPHIL PERCENTAGE DECREASED [None]
  - PLATELET COUNT DECREASED [None]
  - PNEUMONIA BACTERIAL [None]
  - SPUTUM CULTURE POSITIVE [None]
  - WHITE BLOOD CELL COUNT DECREASED [None]
